FAERS Safety Report 7906677-8 (Version None)
Quarter: 2011Q4

REPORT INFORMATION
  Report Type: 
  Country: None (occurrence: None)
  Receive Date: 20111109
  Receipt Date: 20111109
  Transmission Date: 20120403
  Serious: No
  Sender: FDA-Public Use
  Company Number: None

PATIENT
  Age: 60 Year
  Sex: Female
  Weight: 54.4316 kg

DRUGS (1)
  1. BONIVA [Suspect]
     Indication: OSTEOPOROSIS
     Dosage: 150 MG 1 PER MONTH
     Dates: start: 20111020

REACTIONS (8)
  - DIARRHOEA [None]
  - PAIN IN JAW [None]
  - FEELING ABNORMAL [None]
  - RASH ERYTHEMATOUS [None]
  - VOMITING [None]
  - HEADACHE [None]
  - BURNING SENSATION [None]
  - ARTHRALGIA [None]
